FAERS Safety Report 9350962 (Version 1)
Quarter: 2013Q2

REPORT INFORMATION
  Report Type: Spontaneous
  Country: DE (occurrence: DE)
  Receive Date: 20130617
  Receipt Date: 20130617
  Transmission Date: 20140414
  Serious: Yes (Life-Threatening, Other)
  Sender: FDA-Public Use
  Company Number: DE-JNJFOC-20130601978

PATIENT
  Age: 31 Year
  Sex: Male
  Weight: 80 kg

DRUGS (1)
  1. DUROGESIC [Suspect]
     Indication: PRODUCT USED FOR UNKNOWN INDICATION
     Route: 048
     Dates: start: 20130604, end: 20130604

REACTIONS (4)
  - Coma [Unknown]
  - Suicide attempt [Unknown]
  - Cyanosis [Unknown]
  - Intentional drug misuse [Unknown]
